FAERS Safety Report 19239048 (Version 1)
Quarter: 2021Q2

REPORT INFORMATION
  Report Type: Spontaneous
  Country: CN (occurrence: CN)
  Receive Date: 20210510
  Receipt Date: 20210510
  Transmission Date: 20210717
  Serious: Yes (Hospitalization, Other)
  Sender: FDA-Public Use
  Company Number: CN-BAYER-2021-136676

PATIENT
  Age: 58 Year
  Sex: Female
  Weight: 51 kg

DRUGS (4)
  1. HUMALOG [Suspect]
     Active Substance: INSULIN LISPRO
     Indication: TYPE 2 DIABETES MELLITUS
     Dosage: 8 IU, BID
     Route: 058
     Dates: start: 20210301, end: 20210428
  2. METFORMIN HYDROCHLORIDE. [Suspect]
     Active Substance: METFORMIN HYDROCHLORIDE
     Indication: TYPE 2 DIABETES MELLITUS
     Dosage: 0.5 G, TID
     Route: 048
     Dates: start: 20210301, end: 20210428
  3. GLUCOBAY [Suspect]
     Active Substance: ACARBOSE
     Indication: TYPE 2 DIABETES MELLITUS
     Dosage: 100 MG, TID
     Route: 048
     Dates: start: 20210301, end: 20210428
  4. PIOGLITAZONE HYDROCHLORIDE. [Suspect]
     Active Substance: PIOGLITAZONE HYDROCHLORIDE
     Indication: TYPE 2 DIABETES MELLITUS
     Dosage: 15 MG, QD
     Route: 048
     Dates: start: 20210301, end: 20210428

REACTIONS (16)
  - Chronic gastritis [None]
  - Anaemia [None]
  - Sinusitis [None]
  - Hyperhidrosis [Recovered/Resolved]
  - Hypoproteinaemia [None]
  - Asthenia [Recovered/Resolved]
  - Nephrolithiasis [None]
  - Lacunar infarction [None]
  - Duodenitis [None]
  - Hypertriglyceridaemia [None]
  - Hypermagnesaemia [None]
  - Adrenomegaly [None]
  - Hypoglycaemia [Recovered/Resolved]
  - Gastritis erosive [None]
  - Gastric ulcer [None]
  - Gastritis [None]

NARRATIVE: CASE EVENT DATE: 20210424
